FAERS Safety Report 7599383-3 (Version None)
Quarter: 2011Q3

REPORT INFORMATION
  Report Type: 
  Country: None (occurrence: None)
  Receive Date: 20110711
  Receipt Date: 20101008
  Transmission Date: 20111222
  Serious: No
  Sender: FDA-Public Use
  Company Number: US-BAYER-201041370NA

PATIENT
  Sex: Female

DRUGS (2)
  1. MIRENA [Suspect]
     Indication: CONTRACEPTION
     Dosage: 20 ?G/D, CONT
     Route: 015
     Dates: start: 20100109, end: 20100109
  2. MIRENA [Suspect]
     Indication: MENORRHAGIA

REACTIONS (2)
  - UTERINE STENOSIS [None]
  - DEVICE DIFFICULT TO USE [None]
